FAERS Safety Report 5721006-6 (Version None)
Quarter: 2008Q2

REPORT INFORMATION
  Report Type: 
  Country: None (occurrence: None)
  Receive Date: 20080429
  Receipt Date: 20080421
  Transmission Date: 20081010
  Serious: Yes (Death, Life-Threatening, Hospitalization, Other)
  Sender: FDA-Public Use
  Company Number: FR-ABBOTT-08P-056-0445321-00

PATIENT
  Sex: Male

DRUGS (4)
  1. MONOZECLAR [Suspect]
     Indication: BRONCHITIS
     Route: 048
     Dates: start: 20080121
  2. ACENOCOUMAROL [Interacting]
     Indication: ANTICOAGULANT THERAPY
     Dates: end: 20080129
  3. PRAVASTATIN [Concomitant]
     Indication: DRUG USE FOR UNKNOWN INDICATION
     Route: 048
  4. INDIGO CARMINE [Concomitant]
     Indication: DRUG USE FOR UNKNOWN INDICATION
     Route: 048

REACTIONS (25)
  - ACTIVITIES OF DAILY LIVING IMPAIRED [None]
  - APHASIA [None]
  - ASTHENIA [None]
  - CONVULSION [None]
  - CYANOSIS [None]
  - DEHYDRATION [None]
  - DIET REFUSAL [None]
  - DISORIENTATION [None]
  - DRUG INTERACTION [None]
  - DYSPNOEA [None]
  - FALL [None]
  - GENERAL PHYSICAL HEALTH DETERIORATION [None]
  - HAEMATURIA [None]
  - LIVEDO RETICULARIS [None]
  - NEUROLOGICAL SYMPTOM [None]
  - ORAL INTAKE REDUCED [None]
  - OVERDOSE [None]
  - OXYGEN SATURATION DECREASED [None]
  - PERIPHERAL COLDNESS [None]
  - PROMINENT EPICANTHAL FOLDS [None]
  - RENAL FAILURE ACUTE [None]
  - SOMNOLENCE [None]
  - SUBCUTANEOUS HAEMATOMA [None]
  - SUBDURAL HAEMATOMA [None]
  - UNRESPONSIVE TO STIMULI [None]
